FAERS Safety Report 15152862 (Version 1)
Quarter: 2018Q3

REPORT INFORMATION
  Report Type: Report from Study
  Country: US (occurrence: US)
  Receive Date: 20180717
  Receipt Date: 20180717
  Transmission Date: 20181010
  Serious: No
  Sender: FDA-Public Use
  Company Number: US-AMGEN-USASL2018095265

PATIENT
  Sex: Female

DRUGS (1)
  1. ENBREL [Suspect]
     Active Substance: ETANERCEPT
     Indication: PSORIATIC ARTHROPATHY
     Dosage: 50 MG, QWK
     Route: 065

REACTIONS (8)
  - Back pain [Recovering/Resolving]
  - Tooth extraction [Unknown]
  - Blood iron decreased [Unknown]
  - Gastrointestinal disorder [Recovering/Resolving]
  - Headache [Recovered/Resolved]
  - Gingival disorder [Unknown]
  - Gingival pain [Not Recovered/Not Resolved]
  - Pelvic discomfort [Unknown]

NARRATIVE: CASE EVENT DATE: 2018
